FAERS Safety Report 4706603-9 (Version None)
Quarter: 2005Q2

REPORT INFORMATION
  Report Type: 
  Country: None (occurrence: None)
  Receive Date: 20050629
  Receipt Date: 20050324
  Transmission Date: 20051028
  Serious: No
  Sender: FDA-Public Use
  Company Number: 05P-163-0295125-00

PATIENT
  Age: 78 Year
  Sex: Female
  Weight: 83.9154 kg

DRUGS (13)
  1. HUMIRA [Suspect]
     Indication: RHEUMATOID ARTHRITIS
     Dosage: 41 MG, 1 IN 2 WK, SUBCUTANEOUS
     Route: 058
     Dates: start: 20050113
  2. OXYCOCET [Concomitant]
  3. SULFASALAZINE [Concomitant]
  4. LEVOTHYROXINE SODIUM [Concomitant]
  5. FOLIC ACID [Concomitant]
  6. MAGNESIUM SULFATE [Concomitant]
  7. SERETIDE MITE [Concomitant]
  8. RALOXIFENE HYDROCHLORIDE [Concomitant]
  9. CALCITONIN-SALMON [Concomitant]
  10. MULTI-VITAMINS [Concomitant]
  11. TOCOPHEROL CONCENTRATE CAP [Concomitant]
  12. ASPIRIN [Concomitant]
  13. IRBESARTAN [Concomitant]

REACTIONS (5)
  - CONTUSION [None]
  - PRURITUS [None]
  - RASH [None]
  - RASH MACULAR [None]
  - URTICARIA [None]
